FAERS Safety Report 19575430 (Version 1)
Quarter: 2021Q3

REPORT INFORMATION
  Report Type: Spontaneous
  Country: US (occurrence: US)
  Receive Date: 20210719
  Receipt Date: 20210719
  Transmission Date: 20211014
  Serious: No
  Sender: FDA-Public Use
  Company Number: US-JNJFOC-20210737210

PATIENT
  Age: 9 Year
  Sex: Male

DRUGS (1)
  1. RISPERDAL [Suspect]
     Active Substance: RISPERIDONE
     Indication: ATTENTION DEFICIT HYPERACTIVITY DISORDER
     Route: 048
     Dates: end: 20100805

REACTIONS (5)
  - Product use in unapproved indication [Unknown]
  - Initial insomnia [Unknown]
  - Somnolence [Unknown]
  - Off label use [Unknown]
  - Nightmare [Unknown]

NARRATIVE: CASE EVENT DATE: 20100505
